FAERS Safety Report 12182934 (Version 2)
Quarter: 2016Q2

REPORT INFORMATION
  Report Type: Spontaneous
  Country: JP (occurrence: JP)
  Receive Date: 20160316
  Receipt Date: 20160405
  Transmission Date: 20160815
  Serious: Yes (Other)
  Sender: FDA-Public Use
  Company Number: PHJP2016JP005415

PATIENT
  Age: 76 Year
  Sex: Female

DRUGS (10)
  1. SODIUM VALPROATE [Concomitant]
     Active Substance: VALPROATE SODIUM
     Indication: PRODUCT USED FOR UNKNOWN INDICATION
     Dosage: 200 MG, UNK
     Route: 065
  2. RIVASTIGMINE. [Suspect]
     Active Substance: RIVASTIGMINE
     Indication: DEMENTIA ALZHEIMER^S TYPE
     Dosage: 1.9 MG, QD (4.5 MG DAILY RIVASTIGMINE BASE, PATCH 2.5 CM2)
     Route: 062
  3. RIVASTIGMINE. [Suspect]
     Active Substance: RIVASTIGMINE
     Dosage: 9.5 MG/24H (18 MG DAILY RIVASTIGMINE BASE PATCH 10 CM2)
     Route: 062
  4. ZOLPIDEM TARTRATE. [Concomitant]
     Active Substance: ZOLPIDEM TARTRATE
     Indication: PRODUCT USED FOR UNKNOWN INDICATION
     Dosage: 5 MG, QD,BEFORE BEDTIME
     Route: 065
  5. HEAVY MAGNESIUM OXIDE [Concomitant]
     Dosage: 110 MG, TID
     Route: 065
  6. RIVASTIGMINE. [Suspect]
     Active Substance: RIVASTIGMINE
     Dosage: 4.6 MG/24H (09 MG DAILY RIVASTIGMINE BASE PATCH 5 CM2)
     Route: 062
  7. HEAVY MAGNESIUM OXIDE [Concomitant]
     Indication: PRODUCT USED FOR UNKNOWN INDICATION
     Dosage: 990 MG, UNK
     Route: 065
  8. RIVASTIGMINE. [Suspect]
     Active Substance: RIVASTIGMINE
     Dosage: 6.9 MG/24HOURS (13.5 MG DAILY RIVASTIGMINE BASE, PATCH 7.5 CM2)
     Route: 062
  9. TIAPRIDE [Concomitant]
     Active Substance: TIAPRIDE
     Indication: PRODUCT USED FOR UNKNOWN INDICATION
     Dosage: 25 MG, QD
     Route: 065
  10. SODIUM VALPROATE [Concomitant]
     Active Substance: VALPROATE SODIUM
     Dosage: 100 MG, QD, AFTER DINNER
     Route: 065

REACTIONS (9)
  - Hypophagia [Unknown]
  - Polydipsia [Unknown]
  - Dysphagia [Unknown]
  - Hypervigilance [Unknown]
  - Concomitant disease progression [Unknown]
  - Lack of spontaneous speech [Unknown]
  - Euphoric mood [Unknown]
  - Amimia [Unknown]
  - Energy increased [Unknown]
